FAERS Safety Report 24293847 (Version 1)
Quarter: 2024Q3

REPORT INFORMATION
  Report Type: Spontaneous
  Country: US (occurrence: None)
  Receive Date: 20240906
  Receipt Date: 20240906
  Transmission Date: 20241017
  Serious: No
  Sender: DOMPE FARMACEUTICI
  Company Number: US-FARMAPROD-202308-202403-0786

PATIENT
  Sex: Female
  Weight: 71.67 kg

DRUGS (19)
  1. OXERVATE [Suspect]
     Active Substance: CENEGERMIN-BKBJ
     Indication: Neurotrophic keratopathy
     Route: 047
     Dates: start: 20240212
  2. ASPIRIN [Concomitant]
     Active Substance: ASPIRIN
  3. HUMULIN N [Concomitant]
     Active Substance: INSULIN HUMAN
     Dosage: VIAL
  4. MAGNESIUM [Concomitant]
     Active Substance: MAGNESIUM
  5. LEVOTHYROXINE SODIUM [Concomitant]
     Active Substance: LEVOTHYROXINE SODIUM
  6. HUMALOG [Concomitant]
     Active Substance: INSULIN LISPRO
  7. VITAMIN K [Concomitant]
     Active Substance: PHYTONADIONE
  8. VITAMIN E [Concomitant]
     Active Substance: .ALPHA.-TOCOPHEROL
  9. PYRIDOXINE [Concomitant]
     Active Substance: PYRIDOXINE
  10. PANTOPRAZOLE SODIUM [Concomitant]
     Active Substance: PANTOPRAZOLE SODIUM
  11. FUROSEMIDE [Concomitant]
     Active Substance: FUROSEMIDE
  12. FISH OIL\OMEGA-3 FATTY ACIDS [Concomitant]
     Active Substance: FISH OIL\OMEGA-3 FATTY ACIDS
     Dosage: 300-1000 MG
  13. VITAMIN A [Concomitant]
     Active Substance: VITAMIN A
  14. FERROUS SULFATE [Concomitant]
     Active Substance: FERROUS SULFATE
     Dosage: 325 (65) MG
  15. TIMOLOL MALEATE [Concomitant]
     Active Substance: TIMOLOL MALEATE
  16. VITAMIN C [Concomitant]
     Active Substance: ASCORBIC ACID
  17. FARXIGA [Concomitant]
     Active Substance: DAPAGLIFLOZIN PROPANEDIOL
  18. DOXYCYCLINE [Concomitant]
     Active Substance: DOXYCYCLINE\DOXYCYCLINE HYCLATE
  19. CREON [Concomitant]
     Active Substance: PANCRELIPASE AMYLASE\PANCRELIPASE LIPASE\PANCRELIPASE PROTEASE
     Dosage: 24-76-120 K

REACTIONS (2)
  - Eye pain [Unknown]
  - Ocular discomfort [Unknown]
